FAERS Safety Report 21436902 (Version 1)
Quarter: 2022Q4

REPORT INFORMATION
  Report Type: Spontaneous
  Country: GB (occurrence: GB)
  Receive Date: 20221010
  Receipt Date: 20221010
  Transmission Date: 20230112
  Serious: Yes (Other)
  Sender: FDA-Public Use
  Company Number: GB-ALLERGAN-2232732US

PATIENT
  Sex: Male

DRUGS (1)
  1. LUMIGAN [Suspect]
     Active Substance: BIMATOPROST
     Indication: Product used for unknown indication
     Dosage: 0.1 MG/ML

REACTIONS (7)
  - Cataract [Unknown]
  - Swelling of eyelid [Unknown]
  - Ocular discomfort [Unknown]
  - Intraocular pressure increased [Unknown]
  - Eye pain [Unknown]
  - Vision blurred [Unknown]
  - Eye pruritus [Unknown]
